FAERS Safety Report 9789612 (Version 2)
Quarter: 2014Q1

REPORT INFORMATION
  Report Type: Spontaneous
  Country: FR (occurrence: FR)
  Receive Date: 20131231
  Receipt Date: 20140213
  Transmission Date: 20141002
  Serious: Yes (Hospitalization)
  Sender: FDA-Public Use
  Company Number: FR-BRISTOL-MYERS SQUIBB COMPANY-19947183

PATIENT
  Age: 75 Year
  Sex: Male

DRUGS (9)
  1. LYSODREN TABS 500 MG [Suspect]
     Indication: ADRENOCORTICAL CARCINOMA
     Dates: start: 20131025, end: 20131203
  2. PANTOPRAZOLE [Concomitant]
  3. HYDROCORTISONE [Concomitant]
  4. VOGALENE [Concomitant]
  5. FORLAX [Concomitant]
     Dosage: 1DF=2 PACKETS
  6. TRAMADOL [Concomitant]
  7. PRIMPERAN [Concomitant]
  8. NORMACOL [Concomitant]
  9. SULFAMETHOXAZOLE [Concomitant]

REACTIONS (1)
  - Agranulocytosis [Recovered/Resolved]
